FAERS Safety Report 14171641 (Version 3)
Quarter: 2017Q4

REPORT INFORMATION
  Report Type: Spontaneous
  Country: JP (occurrence: JP)
  Receive Date: 20171108
  Receipt Date: 20171212
  Transmission Date: 20180321
  Serious: Yes (Other)
  Sender: FDA-Public Use
  Company Number: PHHY2017JP160242

PATIENT
  Age: 75 Year
  Sex: Female
  Weight: 49 kg

DRUGS (14)
  1. CLOPIDOGREL [Suspect]
     Active Substance: CLOPIDOGREL BISULFATE
     Indication: INTRACRANIAL ANEURYSM
     Dosage: 300 MG, QD
     Route: 048
  2. ROCURONIUM BROMIDE. [Concomitant]
     Active Substance: ROCURONIUM BROMIDE
     Indication: GENERAL ANAESTHESIA
     Dosage: 50 MG, QD
     Route: 041
  3. FENTANYL CITRATE. [Concomitant]
     Active Substance: FENTANYL CITRATE
     Indication: PRODUCT USED FOR UNKNOWN INDICATION
     Dosage: 100 UG, QD
     Route: 041
  4. ACETYLSALICYLIC ACID [Suspect]
     Active Substance: ASPIRIN
     Indication: INTRACRANIAL ANEURYSM
     Dosage: 200 MG, QD
     Route: 048
  5. REMIFENTANIL [Concomitant]
     Active Substance: REMIFENTANIL
     Indication: GENERAL ANAESTHESIA
     Dosage: 0.5 ?G/KG/MIN
     Route: 041
  6. ARGATROBAN. [Suspect]
     Active Substance: ARGATROBAN
     Indication: INTRACRANIAL ANEURYSM
     Dosage: 0.8 ?G/KG/MIN, UNK
     Route: 041
  7. PROPOFOL. [Concomitant]
     Active Substance: PROPOFOL
     Dosage: 0.1 ?G/KG/MIN, UNK
     Route: 041
  8. ACETYLSALICYLIC ACID [Suspect]
     Active Substance: ASPIRIN
     Dosage: 100 MG, QD
     Route: 048
  9. REMIFENTANIL [Concomitant]
     Active Substance: REMIFENTANIL
     Dosage: 0.1 ?G/KG/MIN
     Route: 041
  10. CLOPIDOGREL [Suspect]
     Active Substance: CLOPIDOGREL BISULFATE
     Dosage: 75 MG, QD
     Route: 048
  11. PROPOFOL. [Concomitant]
     Active Substance: PROPOFOL
     Indication: GENERAL ANAESTHESIA
     Dosage: 0.5 ?G/KG/MIN, UNK
     Route: 041
  12. PHENYLEPHRINE HYDROCHLORIDE. [Concomitant]
     Active Substance: PHENYLEPHRINE HYDROCHLORIDE
     Indication: PRODUCT USED FOR UNKNOWN INDICATION
     Dosage: 0.4-0.5 MG/H, UNK
     Route: 041
  13. HEPARIN SODIUM. [Concomitant]
     Active Substance: HEPARIN SODIUM
     Indication: INTRACRANIAL ANEURYSM
     Dosage: 400 U, QD
     Route: 042
  14. HEPARIN SODIUM. [Concomitant]
     Active Substance: HEPARIN SODIUM
     Dosage: 500 U, QD
     Route: 042

REACTIONS (6)
  - Haematemesis [Recovering/Resolving]
  - Abdominal wall haematoma [Recovering/Resolving]
  - Nausea [Unknown]
  - Gastrointestinal wall thickening [Unknown]
  - Chest discomfort [Unknown]
  - Cough [Unknown]
